FAERS Safety Report 21272009 (Version 1)
Quarter: 2022Q3

REPORT INFORMATION
  Report Type: Spontaneous
  Country: US (occurrence: US)
  Receive Date: 20220830
  Receipt Date: 20220830
  Transmission Date: 20221026
  Serious: Yes (Other)
  Sender: FDA-Public Use
  Company Number: US-AMERICAN REGENT INC-2022000736

PATIENT
  Age: 5 Decade
  Sex: Female
  Weight: 43.537 kg

DRUGS (2)
  1. FERRIC CARBOXYMALTOSE [Suspect]
     Active Substance: FERRIC CARBOXYMALTOSE
     Indication: Product used for unknown indication
     Dosage: 750 MILLIGRAM, FIRST DOSE OF INJECTAFER
     Route: 042
  2. FERRIC CARBOXYMALTOSE [Suspect]
     Active Substance: FERRIC CARBOXYMALTOSE
     Dosage: 750 MILLIGRAM, SECOND DOSE OF INJECTAFER
     Route: 042
     Dates: start: 20220222, end: 20220222

REACTIONS (5)
  - Hypertension [Unknown]
  - Heart rate increased [Unknown]
  - Dyspnoea [Unknown]
  - Hypotension [Unknown]
  - Incorrect dosage administered [Unknown]

NARRATIVE: CASE EVENT DATE: 20220222
